FAERS Safety Report 12457260 (Version 3)
Quarter: 2017Q1

REPORT INFORMATION
  Report Type: Report from Study
  Country: MX (occurrence: MX)
  Receive Date: 20160610
  Receipt Date: 20170320
  Transmission Date: 20170428
  Serious: Yes (Hospitalization)
  Sender: FDA-Public Use
  Company Number: DE-ACTELION-A-NJ2016-137633

PATIENT
  Age: 82 Year
  Sex: Female

DRUGS (4)
  1. OMEPRAZOLE. [Concomitant]
     Active Substance: OMEPRAZOLE
     Indication: GASTRIC DISORDER
  2. VENTAVIS [Suspect]
     Active Substance: ILOPROST
     Indication: PULMONARY ARTERIAL HYPERTENSION
     Dosage: 3 DF,QD
     Route: 055
     Dates: start: 20160402
  3. ACETAMINOPHEN. [Concomitant]
     Active Substance: ACETAMINOPHEN
     Indication: PAIN
  4. VALIUM [Concomitant]
     Active Substance: DIAZEPAM

REACTIONS (8)
  - Mental disorder [Recovering/Resolving]
  - Capillary nail refill test abnormal [Not Recovered/Not Resolved]
  - Superficial vein prominence [Recovering/Resolving]
  - Hypoaesthesia [Recovering/Resolving]
  - Peripheral coldness [Recovering/Resolving]
  - Epistaxis [Recovering/Resolving]
  - Product use issue [Unknown]
  - Memory impairment [Not Recovered/Not Resolved]

NARRATIVE: CASE EVENT DATE: 20160402
